FAERS Safety Report 4590003-9 (Version None)
Quarter: 2005Q1

REPORT INFORMATION
  Report Type: 
  Country: None (occurrence: None)
  Receive Date: 20050218
  Receipt Date: 20050218
  Transmission Date: 20050727
  Serious: Yes (Life-Threatening)
  Sender: FDA-Public Use
  Company Number: None

PATIENT
  Sex: Female
  Weight: 98 kg

DRUGS (2)
  1. CYMBALTA [Suspect]
     Indication: DEPRESSION
     Dosage: 60MG  DAY ORAL
     Route: 048
     Dates: start: 20040701, end: 20050123
  2. METHADONE HCL [Suspect]
     Indication: PAIN
     Dosage: 100MG  DAY ORAL
     Route: 048
     Dates: start: 20041001, end: 20050123

REACTIONS (2)
  - HEPATIC FUNCTION ABNORMAL [None]
  - HYPERBILIRUBINAEMIA [None]
